FAERS Safety Report 9501624 (Version 2)
Quarter: 2013Q4

REPORT INFORMATION
  Report Type: Spontaneous
  Country: US (occurrence: US)
  Receive Date: 20130905
  Receipt Date: 20131024
  Transmission Date: 20140711
  Serious: Yes (Other)
  Sender: FDA-Public Use
  Company Number: US-PERRIGO-13US008999

PATIENT
  Age: 67 Year
  Sex: Female

DRUGS (2)
  1. ACETAMINOPHEN-ASPIRIN-CAFFEINE 1T1 [Suspect]
     Indication: MIGRAINE
     Dosage: 2 TABLETS, TWICE IN FOUR HOURS
     Route: 048
     Dates: start: 20130815, end: 20130815
  2. ACETAMINOPHEN-ASPIRIN-CAFFEINE 1T1 [Suspect]
     Dosage: 2 TABLETS, TWICE IN FOUR HOURS
     Route: 048
     Dates: start: 20130826, end: 20130826

REACTIONS (5)
  - Hypersensitivity [Recovered/Resolved]
  - Lip swelling [Recovered/Resolved]
  - Swollen tongue [Recovered/Resolved]
  - Dysphagia [Recovered/Resolved]
  - Inappropriate schedule of drug administration [Recovered/Resolved]
